FAERS Safety Report 16034929 (Version 1)
Quarter: 2019Q1

REPORT INFORMATION
  Report Type: Report from Study
  Country: None (occurrence: CH)
  Receive Date: 20190305
  Receipt Date: 20190305
  Transmission Date: 20190418
  Serious: Yes (Death)
  Sender: FDA-Public Use
  Company Number: CH-ABBVIE-19S-151-2690205-00

PATIENT
  Age: 78 Year
  Sex: Female

DRUGS (3)
  1. DUODOPA [Suspect]
     Active Substance: CARBIDOPA\LEVODOPA
     Indication: PARKINSON^S DISEASE
     Route: 050
     Dates: start: 20180724, end: 20180827
  2. DUODOPA [Suspect]
     Active Substance: CARBIDOPA\LEVODOPA
     Dosage: 24H THERAPY?MD: 3.5 ML?CRD: 5.1 ML/H?CONTINUOUS RATE ?ED: 1.1 ML
     Route: 050
     Dates: start: 20190131, end: 20190228
  3. DUODOPA [Suspect]
     Active Substance: CARBIDOPA\LEVODOPA
     Dosage: 24H THERAPY ?MD: 3.5 ML?CR DAY: 4.9 ML/H?CONTINUOUS RATE ?ED: 1.4 ML
     Route: 050
     Dates: start: 20180827, end: 20190131

REACTIONS (1)
  - Death [Fatal]

NARRATIVE: CASE EVENT DATE: 20190228
